FAERS Safety Report 7577738-0 (Version None)
Quarter: 2011Q2

REPORT INFORMATION
  Report Type: 
  Country: None (occurrence: None)
  Receive Date: 20110621
  Receipt Date: 20110609
  Transmission Date: 20111010
  Serious: Yes (Hospitalization)
  Sender: FDA-Public Use
  Company Number: 951915

PATIENT
  Age: 40 Year
  Sex: Male
  Weight: 70 kg

DRUGS (4)
  1. OLANZAPINE [Suspect]
     Indication: ACUTE PSYCHOSIS
     Dosage: 20 MG, TWICE DAILY,
  2. LIGNOCAINE (ANESTHETIC INDUCTION (INDUCTION OF ANAESTHESIA) [Concomitant]
  3. FENTANYL [Concomitant]
  4. PROPOFOL [Suspect]
     Indication: INDUCTION OF ANAESTHESIA
     Dosage: 150 MG,

REACTIONS (5)
  - DRUG INTERACTION [None]
  - UPPER AIRWAY OBSTRUCTION [None]
  - MYOCLONUS [None]
  - LOSS OF CONSCIOUSNESS [None]
  - OPISTHOTONUS [None]
